FAERS Safety Report 18284795 (Version 3)
Quarter: 2021Q2

REPORT INFORMATION
  Report Type: Report from Study
  Country: JP (occurrence: JP)
  Receive Date: 20200918
  Receipt Date: 20210512
  Transmission Date: 20210717
  Serious: Yes (Death)
  Sender: FDA-Public Use
  Company Number: JP-PFIZER INC-2020361636

PATIENT
  Age: 39 Year
  Sex: Male

DRUGS (3)
  1. INOTUZUMAB OZOGAMICIN [Suspect]
     Active Substance: INOTUZUMAB OZOGAMICIN
     Dosage: 0.8 MG/M2, 1X/DAY (1ST DOSE OF FIRST CYCLE)
     Dates: start: 20200206, end: 20200206
  2. INOTUZUMAB OZOGAMICIN [Suspect]
     Active Substance: INOTUZUMAB OZOGAMICIN
     Dosage: 0.5 MG/M2, CYCLIC (3RD DOSE OF FIRST CYCLE)
     Dates: start: 20200402, end: 20200402
  3. INOTUZUMAB OZOGAMICIN [Suspect]
     Active Substance: INOTUZUMAB OZOGAMICIN
     Dosage: 0.5 MG/M2, CYCLIC (2ND DOSE OF FIRST CYCLE)
     Dates: start: 20200305, end: 20200305

REACTIONS (1)
  - Neoplasm progression [Fatal]
